FAERS Safety Report 15384799 (Version 1)
Quarter: 2018Q3

REPORT INFORMATION
  Report Type: Spontaneous
  Country: US (occurrence: US)
  Receive Date: 20180907
  Receipt Date: 20180907
  Transmission Date: 20181010
  Serious: Yes (Hospitalization)
  Sender: FDA-Public Use
  Company Number: None

PATIENT
  Age: 24 Year
  Sex: Male

DRUGS (2)
  1. LEVALBUTEROL. [Suspect]
     Active Substance: LEVALBUTEROL
     Route: 042
     Dates: start: 20180808, end: 20190228
  2. PULMOZYME [Suspect]
     Active Substance: DORNASE ALFA
     Route: 042
     Dates: start: 20180727

REACTIONS (1)
  - Hospitalisation [None]
